FAERS Safety Report 10206383 (Version 1)
Quarter: 2014Q2

REPORT INFORMATION
  Report Type: Spontaneous
  Country: US (occurrence: None)
  Receive Date: 20140528
  Receipt Date: 20140528
  Transmission Date: 20141212
  Serious: Yes (Hospitalization)
  Sender: FDA-Public Use
  Company Number: None

PATIENT
  Age: 48 Year
  Sex: Female

DRUGS (9)
  1. CEFAZOLIN [Suspect]
     Indication: ANTIBIOTIC PROPHYLAXIS
     Dates: start: 20130315, end: 20130315
  2. CEFAZOLIN [Suspect]
     Dates: start: 20130315, end: 20130315
  3. CEPHALEXIN [Suspect]
     Indication: ANTIBIOTIC PROPHYLAXIS
     Dates: start: 20130315, end: 20130322
  4. COLACE [Concomitant]
  5. ZOFRAN [Concomitant]
  6. PERCOCET [Concomitant]
  7. CELEBREX [Concomitant]
  8. ROBINAL [Concomitant]
  9. PHENERGAN [Concomitant]

REACTIONS (3)
  - Pruritus [None]
  - Jaundice [None]
  - Cholelithiasis [None]
